FAERS Safety Report 5781303-5 (Version None)
Quarter: 2008Q2

REPORT INFORMATION
  Report Type: 
  Country: None (occurrence: None)
  Receive Date: 20080623
  Receipt Date: 20080509
  Transmission Date: 20081010
  Serious: No
  Sender: FDA-Public Use
  Company Number: US-BAYER-200818918NA

PATIENT
  Age: 27 Year
  Sex: Female
  Weight: 122 kg

DRUGS (2)
  1. MIRENA [Suspect]
     Indication: CONTRACEPTION
     Route: 015
     Dates: start: 20080122, end: 20080126
  2. MIRENA [Suspect]
     Route: 015
     Dates: start: 20080129, end: 20080201

REACTIONS (3)
  - DYSPAREUNIA [None]
  - GENITAL PAIN [None]
  - INTRA-UTERINE CONTRACEPTIVE DEVICE EXPELLED [None]
